FAERS Safety Report 6853508-3 (Version None)
Quarter: 2010Q3

REPORT INFORMATION
  Report Type: 
  Country: None (occurrence: None)
  Receive Date: 20100717
  Receipt Date: 20071211
  Transmission Date: 20110219
  Serious: No
  Sender: FDA-Public Use
  Company Number: US-PFIZER INC-2007104677

PATIENT
  Sex: Female
  Weight: 77.1 kg

DRUGS (9)
  1. CHANTIX [Suspect]
     Indication: SMOKING CESSATION THERAPY
     Dates: start: 20071118
  2. METFORMIN HCL [Concomitant]
     Indication: GLUCOSE TOLERANCE IMPAIRED
  3. SIMVASTATIN [Concomitant]
     Indication: BLOOD CHOLESTEROL ABNORMAL
  4. ENALAPRIL MALEATE [Concomitant]
     Indication: BLOOD PRESSURE ABNORMAL
  5. CITALOPRAM HYDROBROMIDE [Concomitant]
     Indication: SLEEP DISORDER
  6. ALLOPURINOL [Concomitant]
     Indication: GOUT
  7. THYROID TAB [Concomitant]
  8. ACETYLSALICYLIC ACID [Concomitant]
  9. MULTI-VITAMINS [Concomitant]

REACTIONS (2)
  - DYSGEUSIA [None]
  - NAUSEA [None]
